FAERS Safety Report 4953036-6 (Version None)
Quarter: 2006Q1

REPORT INFORMATION
  Report Type: 
  Country: None (occurrence: None)
  Receive Date: 20060320
  Receipt Date: 20060306
  Transmission Date: 20060701
  Serious: Yes (Other)
  Sender: FDA-Public Use
  Company Number: 2006033433

PATIENT
  Sex: Female
  Weight: 52.1637 kg

DRUGS (6)
  1. DETROL LA [Suspect]
     Indication: HYPERTONIC BLADDER
  2. LIPITOR [Suspect]
     Indication: BLOOD CHOLESTEROL INCREASED
     Dosage: 10 MG (10 MG, 1 IN 1 D), ORAL
     Route: 048
  3. IBUPROFEN [Suspect]
     Indication: PAIN
     Dosage: 400 MG (400 MG, 1 IN 1 D), ORAL
     Route: 048
  4. CALCIUM (CALCIUM) [Suspect]
     Indication: ILL-DEFINED DISORDER
  5. ACTONEL [Suspect]
     Indication: BONE DISORDER
     Dosage: (1 IN 1 WK)
  6. VITAMIN CAP [Suspect]
     Indication: ILL-DEFINED DISORDER

REACTIONS (7)
  - ARTHRITIS [None]
  - BACK PAIN [None]
  - CONSTIPATION [None]
  - DIVERTICULITIS [None]
  - FALL [None]
  - HYPOACUSIS [None]
  - NECK PAIN [None]
